FAERS Safety Report 6590999-X (Version None)
Quarter: 2010Q1

REPORT INFORMATION
  Report Type: 
  Country: None (occurrence: None)
  Receive Date: 20100219
  Receipt Date: 20100210
  Transmission Date: 20100710
  Serious: Yes (Hospitalization)
  Sender: FDA-Public Use
  Company Number: IT-ELI_LILLY_AND_COMPANY-IT201002002715

PATIENT
  Sex: Male

DRUGS (7)
  1. HUMALOG [Suspect]
     Indication: TYPE 2 DIABETES MELLITUS
     Dosage: 30 U, DAILY (1/D)
     Route: 058
  2. HUMALOG MIX 50/50 [Suspect]
     Indication: TYPE 2 DIABETES MELLITUS
     Dosage: 18 U, DAILY (1/D)
     Route: 058
  3. ACETYLSALICYLIC ACID [Concomitant]
     Indication: MYOCARDIAL ISCHAEMIA
     Dosage: 100 MG, UNK
     Route: 048
  4. LASIX [Concomitant]
     Dosage: 25 MG, UNK
     Route: 048
  5. DILTIAZEM HCL [Concomitant]
     Dosage: 60 MG, UNK
     Route: 048
  6. KARVEA [Concomitant]
     Dosage: 300 MG, UNK
     Route: 048
  7. ALLOPURINOL [Concomitant]
     Indication: GOUT
     Dosage: 300 MG, UNK
     Route: 048

REACTIONS (4)
  - AGITATION [None]
  - HYPERHIDROSIS [None]
  - HYPOGLYCAEMIA [None]
  - INCORRECT DOSE ADMINISTERED [None]
